FAERS Safety Report 4483391-5 (Version None)
Quarter: 2004Q4

REPORT INFORMATION
  Report Type: 
  Country: None (occurrence: None)
  Receive Date: 20041020
  Receipt Date: 20041011
  Transmission Date: 20050328
  Serious: Yes (Hospitalization, Other)
  Sender: FDA-Public Use
  Company Number: ITWYE085404OCT04

PATIENT
  Age: 72 Year
  Sex: Female

DRUGS (4)
  1. AVOCIN (PIPERACILLIN, INJECTION, 0) [Suspect]
     Dosage: 4 G 1X PER 1 DAY, INTRAVENOUS
     Route: 042
     Dates: start: 20040912, end: 20040918
  2. ASPIRIN [Suspect]
     Dosage: 100 MG 1X PER 1 DAY, ORAL
     Route: 048
     Dates: start: 20040912, end: 20040919
  3. LEVOPRAID (SULPIRIDE) [Concomitant]
  4. LUXAZONE (DEXAMETHASONE) [Concomitant]

REACTIONS (1)
  - STAPHYLOCOCCAL SCALDED SKIN SYNDROME [None]
